FAERS Safety Report 6634136-1 (Version None)
Quarter: 2010Q1

REPORT INFORMATION
  Report Type: 
  Country: None (occurrence: None)
  Receive Date: 20100315
  Receipt Date: 20100302
  Transmission Date: 20100710
  Serious: Yes (Other)
  Sender: FDA-Public Use
  Company Number: DE-ELI_LILLY_AND_COMPANY-DE201002001144

PATIENT
  Sex: Female
  Weight: 70 kg

DRUGS (4)
  1. ZYPREXA [Suspect]
     Indication: SCHIZOPHRENIA
     Dosage: 10 MG, UNK
     Route: 048
     Dates: start: 20000101
  2. ZYPREXA [Suspect]
     Dosage: 20 MG, UNK
     Route: 048
     Dates: start: 20071101
  3. RISPERIDONE [Concomitant]
  4. VALPROIC ACID [Concomitant]

REACTIONS (2)
  - HORMONE LEVEL ABNORMAL [None]
  - HYPERANDROGENISM [None]
